FAERS Safety Report 13197526 (Version 9)
Quarter: 2018Q4

REPORT INFORMATION
  Report Type: Spontaneous
  Country: US (occurrence: US)
  Receive Date: 20170208
  Receipt Date: 20181120
  Transmission Date: 20190204
  Serious: Yes (Other)
  Sender: FDA-Public Use
  Company Number: US-PFIZER INC-2017056061

PATIENT
  Age: 68 Year
  Sex: Male

DRUGS (8)
  1. DILANTIN [Suspect]
     Active Substance: PHENYTOIN
     Indication: SEIZURE
     Dosage: UNK
     Dates: start: 1962
  2. DILANTIN [Suspect]
     Active Substance: PHENYTOIN
     Indication: SEIZURE
     Dosage: 500 MG, DAILY (2 CAPSULES OF 100 MG EVERY 05:00 HRS AND 3 CAPSULES OF 100 MG EVERY 17:00 HRS)
     Route: 048
     Dates: start: 20140112
  3. DILANTIN [Suspect]
     Active Substance: PHENYTOIN
     Indication: SEIZURE
     Dosage: 500 MG, DAILY
     Dates: start: 20050129
  4. DILANTIN [Suspect]
     Active Substance: PHENYTOIN
     Dosage: 100 MG, 4X/DAY (2 CAPSULES OF 100 MG EVERY 05:00 HRS AND 2 CAPSULES OF 100 MG EVERY 17:00 HRS
     Route: 048
     Dates: start: 20140113
  5. CELONTIN [Concomitant]
     Active Substance: METHSUXIMIDE
     Indication: SEIZURE
     Dosage: UNK
     Dates: start: 1965
  6. DILANTIN [Suspect]
     Active Substance: PHENYTOIN
     Dosage: 1000 MG, SINGLE
     Route: 042
     Dates: start: 20141026, end: 20141026
  7. ECOTRIN [Concomitant]
     Active Substance: ASPIRIN
     Dosage: 81 MG, UNK
     Dates: start: 20120118
  8. MIRALAX [Concomitant]
     Active Substance: POLYETHYLENE GLYCOL 3350
     Dosage: UNK
     Dates: start: 20141025

REACTIONS (2)
  - Cerebellar atrophy [Not Recovered/Not Resolved]
  - Neuropathy peripheral [Not Recovered/Not Resolved]

NARRATIVE: CASE EVENT DATE: 201605
